FAERS Safety Report 8583027-8 (Version None)
Quarter: 2012Q3

REPORT INFORMATION
  Report Type: 
  Country: None (occurrence: None)
  Receive Date: 20120727
  Receipt Date: 20120717
  Transmission Date: 20120928
  Serious: Yes (Other)
  Sender: FDA-Public Use
  Company Number: 1354498

PATIENT
  Age: 61 Year
  Sex: Female

DRUGS (3)
  1. XELODA [Concomitant]
  2. OXALIPLATIN [Suspect]
     Indication: RECTAL CANCER
     Dosage: 10 ML MILLILITRE(S) ; 40 ML MILLLITRE(S)
     Dates: start: 20120712, end: 20120712
  3. OXALIPLATIN [Suspect]
     Indication: RECTAL CANCER
     Dosage: 10 ML MILLILITRE(S) ; 40 ML MILLLITRE(S)
     Dates: start: 20120712, end: 20120712

REACTIONS (2)
  - LARYNGOSPASM [None]
  - DYSPNOEA [None]
